FAERS Safety Report 26105224 (Version 1)
Quarter: 2025Q4

REPORT INFORMATION
  Report Type: Spontaneous
  Country: US (occurrence: US)
  Receive Date: 20251201
  Receipt Date: 20251201
  Transmission Date: 20260118
  Serious: Yes (Hospitalization, Other)
  Sender: AMGEN
  Company Number: US-AMGEN-USASP2025235517

PATIENT
  Age: 35 Year
  Sex: Female

DRUGS (13)
  1. PREDNISONE [Suspect]
     Active Substance: PREDNISONE
     Indication: Indolent systemic mastocytosis
     Dosage: 10 MILLIGRAM, QD
     Route: 065
     Dates: start: 2019, end: 20190320
  2. PREDNISONE [Suspect]
     Active Substance: PREDNISONE
     Indication: Anaphylactic reaction
  3. MONTELUKAST [Concomitant]
     Active Substance: MONTELUKAST
     Dosage: 10 MILLIGRAM, QD
     Route: 065
     Dates: start: 201802
  4. CROMOLYN [Concomitant]
     Active Substance: CROMOLYN
     Indication: Diarrhoea
     Dosage: 200 MILLIGRAM, QID
     Route: 065
     Dates: start: 201802
  5. EPINEPHRINE [Concomitant]
     Active Substance: EPINEPHRINE
     Indication: Anaphylactic reaction
     Dosage: 0.3 MILLIGRAM
     Dates: start: 201802
  6. EPINEPHRINE [Concomitant]
     Active Substance: EPINEPHRINE
     Dosage: UNK (ONCE EVERY 2 TO 3WEEKS)
     Route: 065
     Dates: start: 201903
  7. OMALIZUMAB [Concomitant]
     Active Substance: OMALIZUMAB
     Indication: Urticaria
     Dosage: 300 MILLIGRAM
     Route: 065
  8. OMALIZUMAB [Concomitant]
     Active Substance: OMALIZUMAB
     Indication: Flushing
     Dosage: 300 MILLIGRAM, Q2WK
     Route: 065
     Dates: start: 201812
  9. RANITIDINE [Concomitant]
     Active Substance: RANITIDINE
     Indication: Urticaria
     Dosage: 150 MILLIGRAM, BID
     Route: 065
     Dates: start: 201812
  10. ALBUTEROL [Concomitant]
     Active Substance: ALBUTEROL
     Indication: Urticaria
     Dosage: UNK
     Dates: start: 201812
  11. DIPHENHYDRAMINE [Concomitant]
     Active Substance: DIPHENHYDRAMINE
     Dosage: UNK (25-50MG PRN)
     Route: 065
     Dates: start: 2019
  12. DOXEPIN [Concomitant]
     Active Substance: DOXEPIN
     Dosage: 100 MILLIGRAM
     Dates: start: 2019
  13. MIDOSTAURIN [Concomitant]
     Active Substance: MIDOSTAURIN
     Indication: Indolent systemic mastocytosis
     Dosage: 100 MILLIGRAM, BID
     Route: 065
     Dates: start: 20190320

REACTIONS (7)
  - Idiopathic intracranial hypertension [Recovering/Resolving]
  - Postural orthostatic tachycardia syndrome [Unknown]
  - Indolent systemic mastocytosis [Recovered/Resolved]
  - Anaphylactic reaction [Recovered/Resolved]
  - Fall [Unknown]
  - Petechiae [Unknown]
  - Off label use [Unknown]

NARRATIVE: CASE EVENT DATE: 20190101
